FAERS Safety Report 21948919 (Version 5)
Quarter: 2023Q1

REPORT INFORMATION
  Report Type: Report from Study
  Country: GB (occurrence: GB)
  Receive Date: 20230203
  Receipt Date: 20230318
  Transmission Date: 20230418
  Serious: Yes (Death, Hospitalization)
  Sender: FDA-Public Use
  Company Number: GB-CELLTRION INC.-2023GB002415

PATIENT

DRUGS (21)
  1. TRASTUZUMAB [Suspect]
     Active Substance: TRASTUZUMAB
     Indication: HER2 positive breast cancer
     Dosage: 464 MILLIGRAM, Q3W
     Route: 042
     Dates: start: 20150709, end: 20151022
  2. TRASTUZUMAB [Suspect]
     Active Substance: TRASTUZUMAB
     Dosage: 450 MILLIGRAM, Q3W
     Route: 042
     Dates: start: 20160912
  3. TRASTUZUMAB [Suspect]
     Active Substance: TRASTUZUMAB
     Dosage: 450 MG, Q3W (STOP DATE: 22 AUG 2016)
     Route: 042
     Dates: start: 20151022, end: 20160822
  4. TRASTUZUMAB [Suspect]
     Active Substance: TRASTUZUMAB
     Dosage: 600 MG LOADING DOSE
     Route: 042
     Dates: start: 20150326, end: 20150416
  5. TRASTUZUMAB [Suspect]
     Active Substance: TRASTUZUMAB
     Dosage: 470 MG, TIW (MAINTAINANCE DOSE_
     Route: 042
     Dates: start: 20150416, end: 20150719
  6. FLUOROURACIL [Suspect]
     Active Substance: FLUOROURACIL
     Indication: Breast cancer metastatic
     Dosage: 900 MILLIGRAM, 3 WEEK
     Route: 042
     Dates: start: 20150305, end: 20150305
  7. FLUOROURACIL [Suspect]
     Active Substance: FLUOROURACIL
     Indication: HER2 positive breast cancer
  8. ANASTROZOLE [Suspect]
     Active Substance: ANASTROZOLE
     Indication: HER2 positive breast cancer
     Dosage: 1 MILLIGRAM, ONCE A DAY
     Route: 048
     Dates: start: 201510
  9. CYCLOPHOSPHAMIDE [Suspect]
     Active Substance: CYCLOPHOSPHAMIDE
     Indication: HER2 positive breast cancer
     Dosage: 900 MILLIGRAM
     Route: 042
     Dates: start: 20150305, end: 20150305
  10. DENOSUMAB [Suspect]
     Active Substance: DENOSUMAB
     Indication: HER2 positive breast cancer
     Dosage: 120 MG, Q4W
     Route: 058
     Dates: start: 20151031, end: 20160728
  11. DENOSUMAB [Suspect]
     Active Substance: DENOSUMAB
     Indication: Metastases to bone
     Dosage: 120 MG, Q4W
     Route: 058
     Dates: start: 20150326
  12. DENOSUMAB [Suspect]
     Active Substance: DENOSUMAB
     Dosage: 120 MG, Q4W
     Route: 058
     Dates: start: 20161003
  13. DOCETAXEL [Suspect]
     Active Substance: DOCETAXEL
     Indication: HER2 positive breast cancer
     Dosage: 130 MG, Q3W (DRUG DISCONTINUED PLANNED NUMBER OF CYCLES COMPLETED)
     Route: 042
     Dates: start: 20150820
  14. DOCETAXEL [Suspect]
     Active Substance: DOCETAXEL
     Dosage: 140 MG, Q3W
     Route: 042
     Dates: start: 20150326, end: 20150709
  15. DOCETAXEL [Suspect]
     Active Substance: DOCETAXEL
     Dosage: 130 MILLIGRAM (DRUG DISCONTINUED PLANNED NUMBER OF CYCLES COMPLETED)
     Route: 042
     Dates: start: 20150709, end: 20150820
  16. EPIRUBICIN [Suspect]
     Active Substance: EPIRUBICIN
     Indication: HER2 positive breast cancer
     Dosage: 180 MILLIGRAM, Q3W
     Route: 042
     Dates: start: 20150305, end: 20150305
  17. PERTUZUMAB [Suspect]
     Active Substance: PERTUZUMAB
     Indication: HER2 positive breast cancer
     Dosage: 420 MG, TIW (MAINTENANCE DOSE)
     Route: 042
     Dates: start: 20150416, end: 20160822
  18. PERTUZUMAB [Suspect]
     Active Substance: PERTUZUMAB
     Dosage: 840 MILLIGRAM (LOADING DOSE)
     Route: 042
     Dates: start: 20150326, end: 20150416
  19. PERTUZUMAB [Suspect]
     Active Substance: PERTUZUMAB
     Dosage: 420 MILLIGRAM, Q3W
     Route: 042
     Dates: start: 20160919
  20. CHLORPHENIRAMINE MALEATE [Concomitant]
     Active Substance: CHLORPHENIRAMINE MALEATE
     Indication: Product used for unknown indication
     Dosage: 10 MILLIGRAM (PRIOR TO EACH TRASTUZUMAB CYCLE)
     Route: 042
     Dates: start: 20150326
  21. ACETAMINOPHEN [Concomitant]
     Active Substance: ACETAMINOPHEN
     Indication: Product used for unknown indication
     Dosage: PRIOR TO EACH TRASTUZUMAB CYCLE
     Route: 048
     Dates: start: 20150326

REACTIONS (16)
  - Disease progression [Fatal]
  - Catheter site bruise [Recovered/Resolved]
  - Oropharyngeal pain [Recovered/Resolved]
  - Decreased appetite [Recovered/Resolved]
  - Nasopharyngitis [Recovered/Resolved]
  - Neuropathy peripheral [Recovered/Resolved]
  - Gastroenteritis viral [Recovered/Resolved]
  - Cough [Recovered/Resolved]
  - Fatigue [Recovered/Resolved]
  - Pyrexia [Recovered/Resolved]
  - Headache [Recovered/Resolved]
  - Arthralgia [Recovered/Resolved]
  - Mucosal inflammation [Recovered/Resolved]
  - Myalgia [Recovered/Resolved]
  - Vomiting [Recovered/Resolved]
  - Diarrhoea [Recovered/Resolved]

NARRATIVE: CASE EVENT DATE: 20150709
